FAERS Safety Report 9439963 (Version 2)
Quarter: 2013Q3

REPORT INFORMATION
  Report Type: Spontaneous
  Country: FR (occurrence: FR)
  Receive Date: 20130805
  Receipt Date: 20130816
  Transmission Date: 20140515
  Serious: Yes (Other)
  Sender: FDA-Public Use
  Company Number: FR-ELI_LILLY_AND_COMPANY-FR201307008355

PATIENT
  Age: 74 Year
  Sex: Male

DRUGS (8)
  1. HUMALOG LISPRO [Suspect]
     Indication: TYPE 2 DIABETES MELLITUS
     Dosage: UNK UNK, UNKNOWN
     Route: 058
  2. VECTIBIX [Suspect]
     Indication: COLON CANCER
     Dosage: 430 MG, UNKNOWN
     Route: 042
     Dates: start: 20130412
  3. VECTIBIX [Suspect]
     Dosage: 370 MG, UNKNOWN
     Route: 042
  4. VECTIBIX [Suspect]
     Dosage: 300 MG, UNKNOWN
     Route: 042
  5. LANTUS [Suspect]
     Indication: TYPE 2 DIABETES MELLITUS
     Dosage: DF, QD
     Route: 058
  6. ENALAPRIL MALEATE [Suspect]
     Indication: HYPERTENSION
     Dosage: DF, QD
     Route: 048
  7. DIFFU K [Suspect]
     Indication: HYPOCALCAEMIA
     Dosage: UNK, QD
     Route: 048
  8. PARIET [Suspect]
     Indication: GASTRIC ULCER
     Dosage: DF, QD
     Route: 048

REACTIONS (10)
  - Hypertensive crisis [Recovered/Resolved]
  - Headache [Recovered/Resolved]
  - Colon cancer [Unknown]
  - Metastases to lung [Unknown]
  - Folliculitis [Unknown]
  - Pruritus [Unknown]
  - Xerosis [Unknown]
  - Paronychia [Unknown]
  - Acne [Unknown]
  - Skin fissures [Unknown]
